FAERS Safety Report 16874469 (Version 4)
Quarter: 2019Q4

REPORT INFORMATION
  Report Type: Report from Study
  Country: NL (occurrence: NL)
  Receive Date: 20191001
  Receipt Date: 20191111
  Transmission Date: 20200122
  Serious: Yes (Hospitalization)
  Sender: FDA-Public Use
  Company Number: PHHO2019NL009457

PATIENT
  Age: 50 Year
  Sex: Male

DRUGS (4)
  1. PANOBINOSTAT [Suspect]
     Active Substance: PANOBINOSTAT
     Dosage: 50 MG
     Route: 048
     Dates: start: 20190918, end: 20190919
  2. CGP 41251 / PKC 412A [Suspect]
     Active Substance: MIDOSTAURIN
     Indication: ACUTE MYELOID LEUKAEMIA
     Dosage: 50 MG
     Route: 048
     Dates: start: 20190916
  3. CGP 41251 / PKC 412A [Suspect]
     Active Substance: MIDOSTAURIN
     Dosage: 50 MG
     Route: 048
     Dates: start: 20190918, end: 20190919
  4. PANOBINOSTAT [Suspect]
     Active Substance: PANOBINOSTAT
     Indication: ACUTE MYELOID LEUKAEMIA
     Dosage: 50 M\
     Route: 048
     Dates: start: 20190916

REACTIONS (4)
  - Malaise [Recovered/Resolved]
  - Diarrhoea [Recovered/Resolved]
  - Nausea [Recovered/Resolved]
  - Vomiting [Recovered/Resolved]

NARRATIVE: CASE EVENT DATE: 20190916
